FAERS Safety Report 6919628-X (Version None)
Quarter: 2010Q3

REPORT INFORMATION
  Report Type: 
  Country: None (occurrence: None)
  Receive Date: 20100811
  Receipt Date: 20100810
  Transmission Date: 20110219
  Serious: No
  Sender: FDA-Public Use
  Company Number: US-ROXANE LABORATORIES, INC.-2010-RO-01033RO

PATIENT
  Age: 80 Year
  Sex: Female

DRUGS (4)
  1. PREDNISONE [Suspect]
  2. ADVAIR DISKUS 100/50 [Suspect]
  3. SPIRIVA [Suspect]
  4. FOSAMAX [Suspect]

REACTIONS (3)
  - FEELING ABNORMAL [None]
  - MENTAL IMPAIRMENT [None]
  - POLYMEDICATION [None]
